FAERS Safety Report 20676619 (Version 1)
Quarter: 2022Q2

REPORT INFORMATION
  Report Type: Report from Study
  Country: BR (occurrence: BR)
  Receive Date: 20220406
  Receipt Date: 20220406
  Transmission Date: 20220721
  Serious: Yes (Other)
  Sender: FDA-Public Use
  Company Number: BR-ABBOTT-2022A-1347217

PATIENT
  Sex: Male

DRUGS (1)
  1. CREON [Suspect]
     Active Substance: PANCRELIPASE AMYLASE\PANCRELIPASE LIPASE\PANCRELIPASE PROTEASE
     Indication: Pancreatic cyst
     Dosage: DAILY DOSE: 25.000 UNITS AFTER LUNCH AND AFTER DINNER
     Route: 048
     Dates: start: 2019

REACTIONS (10)
  - Pancreatic carcinoma [Recovered/Resolved]
  - Malignant neoplasm progression [Unknown]
  - Pancreatectomy [Unknown]
  - Gastrectomy [Unknown]
  - Splenectomy [Unknown]
  - Abnormal faeces [Not Recovered/Not Resolved]
  - Asthenia [Unknown]
  - Weight decreased [Unknown]
  - Pain [Unknown]
  - Constipation [Unknown]

NARRATIVE: CASE EVENT DATE: 20210601
